FAERS Safety Report 7338248-9 (Version None)
Quarter: 2011Q1

REPORT INFORMATION
  Report Type: 
  Country: None (occurrence: None)
  Receive Date: 20110308
  Receipt Date: 20110223
  Transmission Date: 20110831
  Serious: Yes (Hospitalization)
  Sender: FDA-Public Use
  Company Number: FR-ELI_LILLY_AND_COMPANY-FR201103000980

PATIENT
  Sex: Male

DRUGS (4)
  1. CYMBALTA [Suspect]
     Dosage: 60 MG, DAILY (1/D)
     Route: 048
     Dates: start: 20081008, end: 20081019
  2. COAPROVEL [Concomitant]
     Dates: start: 19960101
  3. SERESTA [Concomitant]
     Dosage: 50 MG, UNK
     Dates: start: 19960101
  4. CELECTOL [Concomitant]
     Dosage: UNK, UNKNOWN
     Dates: start: 19960101, end: 20081021

REACTIONS (4)
  - CYANOSIS [None]
  - DEPRESSION [None]
  - OEDEMA PERIPHERAL [None]
  - CAPILLARY DISORDER [None]
